FAERS Safety Report 4519097-3 (Version None)
Quarter: 2004Q4

REPORT INFORMATION
  Report Type: 
  Country: None (occurrence: None)
  Receive Date: 20041206
  Receipt Date: 20041019
  Transmission Date: 20050328
  Serious: Yes (Death, Hospitalization)
  Sender: FDA-Public Use
  Company Number: US-BRISTOL-MYERS SQUIBB COMPANY-12741450

PATIENT
  Age: 49 Year
  Sex: Female
  Weight: 77 kg

DRUGS (4)
  1. ARIPIPRAZOLE [Suspect]
     Route: 048
  2. PAROXETINE [Suspect]
     Route: 048
  3. OLANZAPINE [Suspect]
     Route: 048
  4. CARBAMAZEPINE [Suspect]

REACTIONS (10)
  - ACIDOSIS [None]
  - COMA [None]
  - COMPLETED SUICIDE [None]
  - DRUG ABUSER [None]
  - HYPERCHLORAEMIA [None]
  - HYPERGLYCAEMIA [None]
  - HYPERNATRAEMIA [None]
  - HYPOKALAEMIA [None]
  - RHABDOMYOLYSIS [None]
  - SUPRAVENTRICULAR TACHYCARDIA [None]
